FAERS Safety Report 24265582 (Version 1)
Quarter: 2024Q3

REPORT INFORMATION
  Report Type: Spontaneous
  Country: US (occurrence: US)
  Receive Date: 20240829
  Receipt Date: 20240829
  Transmission Date: 20241016
  Serious: No
  Sender: JOHNSON AND JOHNSON
  Company Number: US-JNJFOC-20240870324

PATIENT
  Sex: Male

DRUGS (1)
  1. RISPERDAL [Suspect]
     Active Substance: RISPERIDONE
     Indication: Affective disorder
     Dosage: VARYING DOSES OF 0.5 MG, 1 MG, 2 MG WITH VARYING FREQUENCIES OF ONCE DAILY AND FOUR TIMES DAILY
     Route: 048

REACTIONS (2)
  - Gynaecomastia [Unknown]
  - Off label use [Unknown]
